FAERS Safety Report 17255363 (Version 1)
Quarter: 2020Q1

REPORT INFORMATION
  Report Type: Report from Study
  Country: None (occurrence: IE)
  Receive Date: 20200110
  Receipt Date: 20200110
  Transmission Date: 20200409
  Serious: Yes (Hospitalization)
  Sender: FDA-Public Use
  Company Number: IE-ABBVIE-20K-229-3225596-00

PATIENT
  Age: 4 Month
  Sex: Female

DRUGS (4)
  1. SYNAGIS [Suspect]
     Active Substance: PALIVIZUMAB
     Indication: PREMATURE BABY
     Dosage: FIRST SEASON
     Route: 030
     Dates: start: 20191011, end: 20191011
  2. VITAMIN D [Concomitant]
     Active Substance: VITAMIN D NOS
     Indication: PRODUCT USED FOR UNKNOWN INDICATION
     Route: 050
  3. SYNAGIS [Suspect]
     Active Substance: PALIVIZUMAB
     Dosage: SEASON 1
     Route: 030
     Dates: start: 20191108, end: 20191108
  4. SYNAGIS [Suspect]
     Active Substance: PALIVIZUMAB
     Dosage: SEASON 1
     Route: 030
     Dates: start: 20200106

REACTIONS (1)
  - Viral infection [Recovered/Resolved]

NARRATIVE: CASE EVENT DATE: 20191216
